FAERS Safety Report 4313393-0 (Version None)
Quarter: 2004Q1

REPORT INFORMATION
  Report Type: 
  Country: None (occurrence: None)
  Receive Date: 20040304
  Receipt Date: 20040216
  Transmission Date: 20041129
  Serious: Yes (Other)
  Sender: FDA-Public Use
  Company Number: USA040259451

PATIENT
  Age: 40 Year
  Sex: Male

DRUGS (2)
  1. STRATTERA [Suspect]
  2. WELLBUTRIN [Concomitant]

REACTIONS (2)
  - ATRIAL FIBRILLATION [None]
  - SYNCOPE [None]
